FAERS Safety Report 24375726 (Version 1)
Quarter: 2024Q3

REPORT INFORMATION
  Report Type: Spontaneous
  Country: US (occurrence: US)
  Receive Date: 20240928
  Receipt Date: 20240928
  Transmission Date: 20241017
  Serious: No
  Sender: ABBVIE
  Company Number: US-ABBVIE-5931135

PATIENT
  Sex: Male

DRUGS (2)
  1. RINVOQ [Suspect]
     Active Substance: UPADACITINIB
     Indication: Product used for unknown indication
     Dosage: 2 CYCLES?FORM STRENGTH: 45 MILLIGRAM
     Route: 048
  2. RINVOQ [Suspect]
     Active Substance: UPADACITINIB
     Indication: Product used for unknown indication
     Dosage: ONE CYCLE?DOSE REDUCED?FORM STRENGTH: 30 MILLIGRAM
     Route: 048

REACTIONS (4)
  - Erythema [Unknown]
  - Skin exfoliation [Unknown]
  - Dermatitis [Unknown]
  - Sunburn [Unknown]
